FAERS Safety Report 6250469-5 (Version None)
Quarter: 2009Q2

REPORT INFORMATION
  Report Type: 
  Country: None (occurrence: None)
  Receive Date: 20090630
  Receipt Date: 20090618
  Transmission Date: 20091009
  Serious: Yes (Hospitalization, Other)
  Sender: FDA-Public Use
  Company Number: JP-JNJFOC-20090607505

PATIENT
  Age: 80 Year
  Sex: Male

DRUGS (2)
  1. DOXIL [Suspect]
     Indication: BLADDER CANCER
     Route: 042
  2. CISPLATIN [Suspect]
     Indication: BLADDER CANCER
     Route: 065

REACTIONS (2)
  - NEUROGENIC BLADDER [None]
  - OFF LABEL USE [None]
